FAERS Safety Report 14636872 (Version 1)
Quarter: 2018Q1

REPORT INFORMATION
  Report Type: Spontaneous
  Country: US (occurrence: US)
  Receive Date: 20180314
  Receipt Date: 20180314
  Transmission Date: 20180509
  Serious: No
  Sender: FDA-Public Use
  Company Number: US-ALLERGAN-1809056US

PATIENT
  Sex: Female

DRUGS (4)
  1. VIBERZI [Suspect]
     Active Substance: ELUXADOLINE
     Dosage: 50 MG, QHS
     Route: 065
  2. VIBERZI [Suspect]
     Active Substance: ELUXADOLINE
     Dosage: 50 MG, PRN
     Route: 065
  3. VIBERZI [Suspect]
     Active Substance: ELUXADOLINE
     Dosage: 100 MG, QD
     Route: 065
  4. VIBERZI [Suspect]
     Active Substance: ELUXADOLINE
     Indication: PRODUCT USED FOR UNKNOWN INDICATION
     Dosage: 100 MG, BID
     Route: 065

REACTIONS (6)
  - Musculoskeletal pain [Unknown]
  - Somnolence [Recovered/Resolved]
  - Fatigue [Unknown]
  - Constipation [Unknown]
  - Contraindicated drug prescribed [Unknown]
  - Intentional product misuse [Unknown]
